FAERS Safety Report 9151046 (Version 1)
Quarter: 2013Q1

REPORT INFORMATION
  Report Type: Spontaneous
  Country: FR (occurrence: FR)
  Receive Date: 20130308
  Receipt Date: 20130308
  Transmission Date: 20140127
  Serious: Yes (Other)
  Sender: FDA-Public Use
  Company Number: FR-ROCHE-1199357

PATIENT
  Age: 89 Year
  Sex: Female

DRUGS (3)
  1. LUCENTIS [Suspect]
     Indication: PRODUCT USED FOR UNKNOWN INDICATION
     Route: 050
     Dates: start: 20121214
  2. LUCENTIS [Suspect]
     Route: 050
     Dates: start: 20121220
  3. BETADINE [Suspect]
     Indication: PRODUCT USED FOR UNKNOWN INDICATION
     Route: 047
     Dates: start: 20121214

REACTIONS (1)
  - Punctate keratitis [Recovered/Resolved]
